FAERS Safety Report 7431991-2 (Version None)
Quarter: 2011Q2

REPORT INFORMATION
  Report Type: 
  Country: None (occurrence: None)
  Receive Date: 20110422
  Receipt Date: 20110412
  Transmission Date: 20111010
  Serious: No
  Sender: FDA-Public Use
  Company Number: US-B.I. PHARMACEUTICALS,INC./RIDGEFIELD-2011-BP-03159BP

PATIENT
  Sex: Female

DRUGS (7)
  1. K+ SUPPL [Concomitant]
     Indication: CARDIAC FAILURE CONGESTIVE
  2. ZOCOR [Concomitant]
     Indication: BLOOD CHOLESTEROL INCREASED
  3. MULTAQ [Suspect]
     Indication: ARRHYTHMIA PROPHYLAXIS
     Dates: start: 20101001
  4. ENALAPRIL MALEATE [Concomitant]
     Indication: HYPERTENSION
  5. FUROSEMIDE [Concomitant]
     Indication: CARDIAC FAILURE CONGESTIVE
  6. PRADAXA [Suspect]
     Indication: ATRIAL FIBRILLATION
     Dosage: 300 MG
     Route: 048
     Dates: start: 20101101
  7. JANUMET [Concomitant]
     Indication: TYPE 2 DIABETES MELLITUS

REACTIONS (6)
  - ABDOMINAL PAIN UPPER [None]
  - GOUT [None]
  - NAUSEA [None]
  - WEIGHT DECREASED [None]
  - FEELING COLD [None]
  - HYPOTENSION [None]
